FAERS Safety Report 18074422 (Version 2)
Quarter: 2020Q3

REPORT INFORMATION
  Report Type: Spontaneous
  Country: US (occurrence: US)
  Receive Date: 20200727
  Receipt Date: 20200825
  Transmission Date: 20201103
  Serious: No
  Sender: FDA-Public Use
  Company Number: US-PFIZER INC-2020284685

PATIENT
  Age: 49 Year
  Sex: Male

DRUGS (3)
  1. INLYTA [Suspect]
     Active Substance: AXITINIB
     Dosage: 2 MG, 2X/DAY (BID?TWICE A DAY)
  2. INLYTA [Suspect]
     Active Substance: AXITINIB
     Dosage: 1 MG, UNK
     Dates: start: 20200709, end: 20200821
  3. INLYTA [Suspect]
     Active Substance: AXITINIB
     Dosage: 5 MG, 2X/DAY (BID?TWICE A DAY)
     Dates: start: 20200315

REACTIONS (4)
  - Speech disorder [Unknown]
  - Swollen tongue [Unknown]
  - Swelling face [Unknown]
  - Palmar-plantar erythrodysaesthesia syndrome [Unknown]
